FAERS Safety Report 7863963-8 (Version None)
Quarter: 2011Q4

REPORT INFORMATION
  Report Type: 
  Country: None (occurrence: None)
  Receive Date: 20111026
  Receipt Date: 20111018
  Transmission Date: 20120403
  Serious: Yes (Hospitalization)
  Sender: FDA-Public Use
  Company Number: 2011SP049388

PATIENT
  Sex: Female

DRUGS (2)
  1. CONCERTA [Concomitant]
  2. NUVARING [Suspect]
     Indication: CONTRACEPTION

REACTIONS (2)
  - CERVICAL DYSPLASIA [None]
  - DYSPAREUNIA [None]
